FAERS Safety Report 16541872 (Version 3)
Quarter: 2019Q3

REPORT INFORMATION
  Report Type: Spontaneous
  Country: JP (occurrence: JP)
  Receive Date: 20190708
  Receipt Date: 20190723
  Transmission Date: 20191004
  Serious: No
  Sender: FDA-Public Use
  Company Number: JP-BEH-2019101102

PATIENT
  Age: 15 Year
  Sex: Male
  Weight: 40 kg

DRUGS (21)
  1. ALFACALCIDOL [Concomitant]
     Active Substance: ALFACALCIDOL
     Indication: PROPHYLAXIS
     Dosage: 0.5 ?G, OD
     Route: 048
     Dates: start: 20130221
  2. HIZENTRA [Suspect]
     Active Substance: HUMAN IMMUNOGLOBULIN G
     Dosage: 4 G/20ML DIVIDED INTO TWO 10ML PORTIONS, SINGLE
     Route: 058
     Dates: start: 20190413, end: 20190413
  3. HIZENTRA [Suspect]
     Active Substance: HUMAN IMMUNOGLOBULIN G
     Dosage: 4 GRAM/ 20ML DIVIDED INTO TWO 10ML PORTIONS,  SINGLE
     Route: 058
     Dates: start: 20190505, end: 20190505
  4. LANSOPRAZOLE. [Concomitant]
     Active Substance: LANSOPRAZOLE
     Indication: PROPHYLAXIS
     Dosage: 15 MG, OD
     Route: 048
     Dates: start: 20130221
  5. ITRACONAZOLE. [Concomitant]
     Active Substance: ITRACONAZOLE
     Indication: PROPHYLAXIS
     Dosage: 50 MG, OD
     Route: 048
     Dates: start: 20130221
  6. HIZENTRA [Suspect]
     Active Substance: HUMAN IMMUNOGLOBULIN G
     Indication: IMMUNOGLOBULIN THERAPY
     Dosage: 4 G/20ML DIVIDED INTO TWO 10ML PORTIONS, SINGLE
     Route: 058
     Dates: start: 20190322
  7. HIZENTRA [Suspect]
     Active Substance: HUMAN IMMUNOGLOBULIN G
     Dosage: 4 GRAM/ 20ML DIVIDED INTO TWO 10ML PORTIONS,  SINGLE
     Route: 058
     Dates: start: 20190402, end: 20190402
  8. TEGRETOL [Concomitant]
     Active Substance: CARBAMAZEPINE
     Indication: EPILEPSY
     Dosage: 200 MG, BID
     Route: 048
     Dates: start: 20141107
  9. ACICLOVIR [Concomitant]
     Active Substance: ACYCLOVIR
     Indication: PROPHYLAXIS
     Dosage: 200 MG, OD
     Route: 048
     Dates: start: 20130221
  10. NEORAL [Concomitant]
     Active Substance: CYCLOSPORINE
     Indication: LUNG TRANSPLANT
     Dosage: 100 MG, BID
     Route: 048
     Dates: start: 20130221
  11. HIZENTRA [Suspect]
     Active Substance: HUMAN IMMUNOGLOBULIN G
     Indication: HYPOGAMMAGLOBULINAEMIA
     Dosage: 4 G/20ML DIVIDED INTO TWO 10ML PORTIONS, SINGLE
     Route: 058
     Dates: start: 20190402, end: 20190402
  12. HIZENTRA [Suspect]
     Active Substance: HUMAN IMMUNOGLOBULIN G
     Dosage: 4 GRAM/ 20ML DIVIDED INTO TWO 10ML PORTIONS,  SINGLE
     Route: 058
     Dates: start: 20190413, end: 20190413
  13. HIZENTRA [Suspect]
     Active Substance: HUMAN IMMUNOGLOBULIN G
     Dosage: 4 GRAM/ 20ML DIVIDED INTO TWO 10ML PORTIONS,  SINGLE
     Route: 058
     Dates: start: 20190420, end: 20190420
  14. BAKTAR [Concomitant]
     Active Substance: SULFAMETHOXAZOLE\TRIMETHOPRIM
     Indication: PROPHYLAXIS
     Dosage: 1 TABLET, BIW
     Route: 048
     Dates: start: 20130221
  15. HIZENTRA [Suspect]
     Active Substance: HUMAN IMMUNOGLOBULIN G
     Dosage: 4 G/20ML DIVIDED INTO TWO 10ML PORTIONS, ODSINGLE
     Route: 058
     Dates: start: 20190420, end: 20190420
  16. PREDNISOLONE. [Concomitant]
     Active Substance: PREDNISOLONE
     Indication: LUNG TRANSPLANT
     Dosage: 2 G, BID
     Route: 048
     Dates: start: 20130221
  17. E KEPPRA [Concomitant]
     Active Substance: LEVETIRACETAM
     Indication: EPILEPSY
     Dosage: 1125 MG, BID
     Route: 048
     Dates: start: 20140801
  18. HIZENTRA [Suspect]
     Active Substance: HUMAN IMMUNOGLOBULIN G
     Dosage: 4 G/20ML DIVIDED INTO TWO 10ML PORTIONS, SINGLE
     Route: 058
     Dates: start: 20190505, end: 20190505
  19. HIZENTRA [Suspect]
     Active Substance: HUMAN IMMUNOGLOBULIN G
     Dosage: 4 G/20ML DIVIDED INTO TWO 10ML PORTIONS, SINGLE
     Route: 058
     Dates: start: 20190427, end: 20190427
  20. HIZENTRA [Suspect]
     Active Substance: HUMAN IMMUNOGLOBULIN G
     Dosage: 4 GRAM/ 20ML DIVIDED INTO TWO 10ML PORTIONS,  SINGLE
     Route: 058
     Dates: start: 20190427, end: 20190427
  21. FYCOMPA [Concomitant]
     Active Substance: PERAMPANEL
     Indication: EPILEPSY
     Dosage: 12 MG, OD
     Route: 048
     Dates: start: 20161118

REACTIONS (4)
  - Administration site pruritus [Recovered/Resolved]
  - Administration site pruritus [Recovered/Resolved]
  - Administration site erythema [Recovered/Resolved]
  - Administration site erythema [Recovered/Resolved]

NARRATIVE: CASE EVENT DATE: 20190322
